FAERS Safety Report 6805596-8 (Version None)
Quarter: 2010Q2

REPORT INFORMATION
  Report Type: 
  Country: None (occurrence: None)
  Receive Date: 20100628
  Receipt Date: 20080115
  Transmission Date: 20101027
  Serious: No
  Sender: FDA-Public Use
  Company Number: US-PFIZER INC-2008006107

PATIENT
  Age: 46 Year
  Sex: Female

DRUGS (5)
  1. GEODON [Suspect]
     Indication: BIPOLAR DISORDER
     Route: 048
     Dates: start: 20070713, end: 20070731
  2. LITHIUM [Concomitant]
     Indication: BIPOLAR DISORDER
     Route: 048
     Dates: start: 20070713
  3. TOPAMAX [Concomitant]
     Indication: MIGRAINE
     Route: 048
  4. ACETYLSALICYLIC ACID [Concomitant]
     Route: 048
  5. VICODIN [Concomitant]
     Indication: BACK PAIN
     Route: 048

REACTIONS (1)
  - GALACTORRHOEA [None]
